FAERS Safety Report 4369177-0 (Version None)
Quarter: 2004Q2

REPORT INFORMATION
  Report Type: 
  Country: None (occurrence: None)
  Receive Date: 20040527
  Receipt Date: 20040511
  Transmission Date: 20050107
  Serious: Yes (Other)
  Sender: FDA-Public Use
  Company Number: USA040567205

PATIENT
  Age: 36 Year
  Sex: Female
  Weight: 52 kg

DRUGS (3)
  1. STRATTERA [Suspect]
     Indication: ATTENTION DEFICIT/HYPERACTIVITY DISORDER
     Dosage: 60 MG
     Dates: start: 20040501
  2. LITHIUM CARBONATE [Concomitant]
  3. TRAZODONE HCL [Concomitant]

REACTIONS (8)
  - DRUG INTOLERANCE [None]
  - DYSPNOEA [None]
  - FATIGUE [None]
  - HAEMATEMESIS [None]
  - MOOD ALTERED [None]
  - NAUSEA [None]
  - TREMOR [None]
  - WEIGHT DECREASED [None]
